FAERS Safety Report 8438560 (Version 3)
Quarter: 2014Q2

REPORT INFORMATION
  Report Type: Spontaneous
  Country: US (occurrence: US)
  Receive Date: 20120302
  Receipt Date: 20140403
  Transmission Date: 20141212
  Serious: Yes (Hospitalization)
  Sender: FDA-Public Use
  Company Number: US-US-EMD SERONO, INC.-7115443

PATIENT
  Age: 56 Year
  Sex: Male
  Weight: 82 kg

DRUGS (4)
  1. REBIF [Suspect]
     Indication: MULTIPLE SCLEROSIS
     Route: 058
     Dates: start: 20111012
  2. GABAPENTIN [Concomitant]
     Indication: PAIN IN EXTREMITY
  3. LEXAPRO [Concomitant]
     Indication: ANXIETY
  4. LEXAPRO [Concomitant]
     Indication: DEPRESSION

REACTIONS (2)
  - Urinary tract infection [Unknown]
  - Injection site pain [Unknown]
